FAERS Safety Report 6536813-X (Version None)
Quarter: 2010Q1

REPORT INFORMATION
  Report Type: 
  Country: None (occurrence: None)
  Receive Date: 20100113
  Receipt Date: 20100106
  Transmission Date: 20100710
  Serious: Yes (Hospitalization)
  Sender: FDA-Public Use
  Company Number: US-AMGEN-QUU384024

PATIENT
  Sex: Male

DRUGS (2)
  1. ENBREL [Suspect]
     Indication: OSTEOARTHRITIS
     Route: 058
  2. ENBREL [Suspect]
     Indication: SPONDYLOARTHROPATHY

REACTIONS (1)
  - SURGERY [None]
